FAERS Safety Report 12578927 (Version 1)
Quarter: 2016Q3

REPORT INFORMATION
  Report Type: Spontaneous
  Country: US (occurrence: US)
  Receive Date: 20160721
  Receipt Date: 20160721
  Transmission Date: 20161109
  Serious: Yes (Other)
  Sender: FDA-Public Use
  Company Number: PHEH2016US017390

PATIENT
  Age: 25 Year
  Sex: Male
  Weight: 81.63 kg

DRUGS (4)
  1. VIEKIRA PAK [Suspect]
     Active Substance: DASABUVIR\OMBITASVIR\PARITAPREVIR\RITONAVIR
     Indication: PRODUCT USED FOR UNKNOWN INDICATION
     Dosage: UNK
     Route: 048
     Dates: start: 20160526, end: 20160607
  2. METHADONE [Concomitant]
     Active Substance: METHADONE HYDROCHLORIDE
     Indication: PRODUCT USED FOR UNKNOWN INDICATION
     Route: 065
  3. ZOFRAN [Suspect]
     Active Substance: ONDANSETRON HYDROCHLORIDE
     Indication: NAUSEA
     Route: 065
  4. MODERIBA [Suspect]
     Active Substance: RIBAVIRIN
     Indication: PRODUCT USED FOR UNKNOWN INDICATION
     Dosage: UNK
     Route: 048
     Dates: start: 20160526, end: 20160607

REACTIONS (13)
  - Migraine [Recovered/Resolved]
  - Headache [Recovered/Resolved]
  - Drug ineffective [Unknown]
  - Gait disturbance [Recovered/Resolved]
  - Epilepsy [Recovered/Resolved]
  - Hyperhidrosis [Recovered/Resolved]
  - Hypophagia [Recovered/Resolved]
  - Asthenia [Recovered/Resolved]
  - Vomiting [Recovered/Resolved]
  - Nausea [Recovered/Resolved]
  - Heart rate increased [Recovered/Resolved]
  - Feeling abnormal [Recovered/Resolved]
  - Dyspnoea [Recovered/Resolved]

NARRATIVE: CASE EVENT DATE: 20160526
